FAERS Safety Report 20703221 (Version 1)
Quarter: 2022Q2

REPORT INFORMATION
  Report Type: Spontaneous
  Country: PT (occurrence: PT)
  Receive Date: 20220413
  Receipt Date: 20220413
  Transmission Date: 20220721
  Serious: Yes (Other)
  Sender: FDA-Public Use
  Company Number: PT-INFARMED-J202203-512

PATIENT
  Age: 46 Year
  Sex: Female

DRUGS (1)
  1. IBUPROFEN [Suspect]
     Active Substance: IBUPROFEN
     Indication: Odynophagia
     Dosage: UNK
     Route: 048
     Dates: start: 20181215

REACTIONS (4)
  - Angioedema [Recovered/Resolved]
  - Periorbital oedema [Recovered/Resolved]
  - Rash [Recovered/Resolved]
  - Urticaria [Recovered/Resolved]
